FAERS Safety Report 9975914 (Version 1)
Quarter: 2014Q1

REPORT INFORMATION
  Report Type: Spontaneous
  Country: US (occurrence: US)
  Receive Date: 20140306
  Receipt Date: 20140306
  Transmission Date: 20141002
  Serious: No
  Sender: FDA-Public Use
  Company Number: US-PFIZER INC-2014060216

PATIENT
  Age: 22 Year
  Sex: Male
  Weight: 51.7 kg

DRUGS (2)
  1. ADVIL [Suspect]
     Indication: PYREXIA
     Dosage: 200 MG, DAILY
     Route: 048
     Dates: start: 20140228, end: 20140228
  2. DAYQUIL [Concomitant]
     Dosage: UNK

REACTIONS (1)
  - Rash [Unknown]
